FAERS Safety Report 7277643-3 (Version None)
Quarter: 2011Q1

REPORT INFORMATION
  Report Type: 
  Country: None (occurrence: None)
  Receive Date: 20110202
  Receipt Date: 20110202
  Transmission Date: 20110831
  Serious: No
  Sender: FDA-Public Use
  Company Number: None

PATIENT
  Age: 45 Year
  Sex: Female
  Weight: 79.3795 kg

DRUGS (1)
  1. COPAXONE [Suspect]
     Indication: MULTIPLE SCLEROSIS
     Dosage: DAILY SQ
     Dates: start: 20090501, end: 20101215

REACTIONS (6)
  - CONDITION AGGRAVATED [None]
  - SKIN DISCOLOURATION [None]
  - HAEMORRHAGE [None]
  - HERPES SIMPLEX [None]
  - MUSCLE ATROPHY [None]
  - ABDOMINAL PAIN [None]
